FAERS Safety Report 13342355 (Version 1)
Quarter: 2017Q1

REPORT INFORMATION
  Report Type: Spontaneous
  Country: US (occurrence: US)
  Receive Date: 20170316
  Receipt Date: 20170316
  Transmission Date: 20170428
  Serious: No
  Sender: FDA-Public Use
  Company Number: US-ADAPT PHARMA INC-2016ADP00133

PATIENT
  Sex: Female

DRUGS (2)
  1. NALOXONE HYDROCHLORIDE. [Suspect]
     Active Substance: NALOXONE HYDROCHLORIDE
     Indication: OVERDOSE
     Dosage: UNK, X4 DOSES
     Route: 065
     Dates: start: 20161202, end: 20161202
  2. UNKNOWN (PRESUMED) OPIATE DRUG(S) [Suspect]
     Active Substance: UNSPECIFIED INGREDIENT

REACTIONS (1)
  - Feeling abnormal [Unknown]

NARRATIVE: CASE EVENT DATE: 20161202
